FAERS Safety Report 8525486-2 (Version None)
Quarter: 2012Q3

REPORT INFORMATION
  Report Type: 
  Country: None (occurrence: None)
  Receive Date: 20120720
  Receipt Date: 20120710
  Transmission Date: 20120928
  Serious: Yes (Other)
  Sender: FDA-Public Use
  Company Number: JP-VERTEX PHARMACEUTICALS INC.-AE-2012-004898

PATIENT
  Age: 59 Year
  Sex: Female

DRUGS (8)
  1. PEGINTERFERON ALFA-2B [Concomitant]
     Indication: HEPATITIS C
     Route: 058
     Dates: start: 20120118
  2. SELBEX [Concomitant]
     Route: 048
     Dates: start: 20120206
  3. RIBAVIRIN [Concomitant]
     Indication: HEPATITIS C
     Route: 048
     Dates: start: 20120118
  4. TELAVIC (TELAPREVIR) [Suspect]
     Indication: HEPATITIS C
     Route: 048
     Dates: start: 20120118, end: 20120409
  5. FAMOTIDINE [Concomitant]
     Route: 048
     Dates: start: 20120120
  6. ALLEGRA [Concomitant]
     Route: 048
     Dates: start: 20120213
  7. LOXONIN [Concomitant]
     Indication: MUSCULOSKELETAL PAIN
     Route: 061
     Dates: end: 20120122
  8. PURSENNID [Concomitant]
     Route: 048
     Dates: start: 20120118

REACTIONS (2)
  - PANCYTOPENIA [None]
  - WHITE BLOOD CELL COUNT DECREASED [None]
